FAERS Safety Report 21588899 (Version 6)
Quarter: 2023Q1

REPORT INFORMATION
  Report Type: Spontaneous
  Country: US (occurrence: US)
  Receive Date: 20221114
  Receipt Date: 20230217
  Transmission Date: 20230417
  Serious: Yes (Other)
  Sender: FDA-Public Use
  Company Number: US-PFIZER INC-2020235361

PATIENT
  Age: 58 Year
  Sex: Female
  Weight: 77.107 kg

DRUGS (6)
  1. ESTRING [Suspect]
     Active Substance: ESTRADIOL
     Indication: Bladder discomfort
     Dosage: 2 MG, CYCLIC (2 MG (EVERY 3 MONTHS)
     Route: 067
  2. ESTRING [Suspect]
     Active Substance: ESTRADIOL
     Indication: Incontinence
  3. ESTRING [Suspect]
     Active Substance: ESTRADIOL
     Indication: Food allergy
  4. ESTRING [Suspect]
     Active Substance: ESTRADIOL
     Indication: Abdominal discomfort
  5. ESTRING [Suspect]
     Active Substance: ESTRADIOL
     Indication: Atrophic vulvovaginitis
  6. ESTRING [Suspect]
     Active Substance: ESTRADIOL
     Indication: Hormone replacement therapy

REACTIONS (6)
  - Haemorrhage [Unknown]
  - Cataract [Unknown]
  - Eye operation [Unknown]
  - Drug ineffective [Unknown]
  - Drug hypersensitivity [Unknown]
  - Ear infection [Unknown]

NARRATIVE: CASE EVENT DATE: 20220201
